FAERS Safety Report 13437291 (Version 2)
Quarter: 2017Q3

REPORT INFORMATION
  Report Type: Spontaneous
  Country: JP (occurrence: JP)
  Receive Date: 20170413
  Receipt Date: 20170803
  Transmission Date: 20171127
  Serious: Yes (Hospitalization, Other)
  Sender: FDA-Public Use
  Company Number: JP-ELI_LILLY_AND_COMPANY-JP201701007493

PATIENT
  Age: 55 Year
  Sex: Male
  Weight: 38 kg

DRUGS (16)
  1. PACLITAXEL. [Suspect]
     Active Substance: PACLITAXEL
     Indication: GINGIVAL CANCER
     Dosage: 80 MG/M2, WEEKLY (1/W)
     Route: 041
     Dates: start: 20160719
  2. DUROTEP [Concomitant]
     Active Substance: FENTANYL
     Dosage: 6.3 MG, UNKNOWN
     Route: 065
     Dates: start: 20160620
  3. MAGNESIUM                          /07349401/ [Concomitant]
     Indication: PRODUCT USED FOR UNKNOWN INDICATION
     Dosage: 1980 MG, UNKNOWN
     Route: 048
     Dates: start: 20160519
  4. DUROTEP [Concomitant]
     Active Substance: FENTANYL
     Dosage: 1 PATCH PER TIME
  5. DUROTEP [Concomitant]
     Active Substance: FENTANYL
     Dosage: 8.4 MG, UNKNOWN
     Route: 065
     Dates: start: 20161017
  6. ERBITUX [Suspect]
     Active Substance: CETUXIMAB
     Indication: GINGIVAL CANCER
     Dosage: 400 MG/M2, UNKNOWN
     Route: 042
     Dates: start: 20160523, end: 20160523
  7. ERBITUX [Suspect]
     Active Substance: CETUXIMAB
     Dosage: 250 MG/M2, WEEKLY (1/W)
     Route: 042
     Dates: start: 2016
  8. LANSOPRAZOLE. [Concomitant]
     Active Substance: LANSOPRAZOLE
     Indication: PRODUCT USED FOR UNKNOWN INDICATION
     Dosage: 15 MG, UNKNOWN
     Route: 048
     Dates: start: 20160517
  9. ALLOID G [Concomitant]
     Active Substance: SODIUM ALGINATE
     Indication: PRODUCT USED FOR UNKNOWN INDICATION
     Dosage: 60 ML, UNKNOWN
     Route: 048
     Dates: start: 20160519
  10. URSODEOXYCHOLIC ACID [Concomitant]
     Active Substance: URSODIOL
     Indication: PRODUCT USED FOR UNKNOWN INDICATION
     Dosage: 500 MG, UNKNOWN
     Route: 048
     Dates: start: 20160517
  11. OXYCONTIN [Concomitant]
     Active Substance: OXYCODONE HYDROCHLORIDE
     Indication: LIVER INJURY
     Dosage: 20 MG, QD
     Route: 048
     Dates: start: 20160517
  12. NOVAMIN                            /00013301/ [Concomitant]
     Active Substance: PROCHLORPERAZINE
     Indication: PRODUCT USED FOR UNKNOWN INDICATION
     Dosage: 15 MG, UNKNOWN
     Route: 048
     Dates: start: 20160517
  13. CEPHARANTHINE [Concomitant]
     Active Substance: CEPHARANTHINE
     Indication: PRODUCT USED FOR UNKNOWN INDICATION
     Dosage: 6 MG, UNKNOWN
     Route: 048
     Dates: start: 20160519
  14. MINOCYCLINE HYDROCHLORIDE. [Concomitant]
     Active Substance: MINOCYCLINE HYDROCHLORIDE
     Indication: PRODUCT USED FOR UNKNOWN INDICATION
     Dosage: 200 MG, UNKNOWN
     Route: 048
     Dates: start: 20160523
  15. DUROTEP [Concomitant]
     Active Substance: FENTANYL
     Indication: PAIN
     Dosage: 4.2 MG, UNKNOWN
     Route: 065
     Dates: start: 20160610
  16. MINOFIT [Concomitant]
     Active Substance: CYSTEINE\GLYCINE\GLYCYRRHIZIN
     Indication: LIVER INJURY
     Dosage: UNK UNK, UNKNOWN
     Route: 065

REACTIONS (16)
  - Interstitial lung disease [Recovering/Resolving]
  - Weight decreased [Not Recovered/Not Resolved]
  - Duodenal ulcer haemorrhage [Recovering/Resolving]
  - Gingival disorder [Not Recovered/Not Resolved]
  - Corneal disorder [Unknown]
  - Dermatitis [Recovering/Resolving]
  - Hypocalcaemia [Recovered/Resolved]
  - Off label use [Unknown]
  - Anaemia [Not Recovered/Not Resolved]
  - Oedema peripheral [Recovering/Resolving]
  - Conjunctivitis [Unknown]
  - Stomatitis [Not Recovered/Not Resolved]
  - Enteritis [Recovering/Resolving]
  - Disease progression [Unknown]
  - Pain [Not Recovered/Not Resolved]
  - Hypomagnesaemia [Recovered/Resolved]

NARRATIVE: CASE EVENT DATE: 20160525
